FAERS Safety Report 9746902 (Version 2)
Quarter: 2014Q1

REPORT INFORMATION
  Report Type: Spontaneous
  Country: US (occurrence: US)
  Receive Date: 20131211
  Receipt Date: 20140218
  Transmission Date: 20141002
  Serious: No
  Sender: FDA-Public Use
  Company Number: US-B.I. PHARMACEUTICALS,INC./RIDGEFIELD-2013-BI-39315BP

PATIENT
  Age: 66 Year
  Sex: Male
  Weight: 84 kg

DRUGS (1)
  1. SPIRIVA [Suspect]
     Indication: BRONCHITIS CHRONIC
     Dosage: 18 MCG
     Route: 055
     Dates: start: 201305

REACTIONS (3)
  - Dyspnoea [Recovered/Resolved]
  - Product quality issue [Recovered/Resolved]
  - Product quality issue [Recovered/Resolved]
